FAERS Safety Report 5615954-5 (Version None)
Quarter: 2008Q1

REPORT INFORMATION
  Report Type: 
  Country: None (occurrence: None)
  Receive Date: 20080206
  Receipt Date: 20080204
  Transmission Date: 20080703
  Serious: Yes (Other)
  Sender: FDA-Public Use
  Company Number: IT-BOEHRINGER INGELHEIM GMBH, GERMANY-2008-DE-00699GD

PATIENT

DRUGS (1)
  1. MORPHINE [Suspect]
     Indication: PAIN
     Route: 037

REACTIONS (1)
  - MENINGITIS [None]
